FAERS Safety Report 24230277 (Version 3)
Quarter: 2024Q3

REPORT INFORMATION
  Report Type: Spontaneous
  Country: CA (occurrence: CA)
  Receive Date: 20240821
  Receipt Date: 20240901
  Transmission Date: 20241017
  Serious: Yes (Other)
  Sender: PFIZER
  Company Number: CA-PFIZER INC-202300381453

PATIENT
  Age: 73 Year
  Sex: Male
  Weight: 70 kg

DRUGS (26)
  1. RUXIENCE [Suspect]
     Active Substance: RITUXIMAB-PVVR
     Indication: Granulomatosis with polyangiitis
     Dosage: 694 MG WEEKLY, 4 DOSES
     Route: 042
     Dates: start: 20230711, end: 20230731
  2. RUXIENCE [Suspect]
     Active Substance: RITUXIMAB-PVVR
     Dosage: 694 MG WEEKLY, 4 DOSES
     Route: 042
     Dates: start: 20230731
  3. RUXIENCE [Suspect]
     Active Substance: RITUXIMAB-PVVR
     Dosage: 694 MG WEEKLY, 4 DOSES
     Route: 042
     Dates: start: 20230731
  4. RUXIENCE [Suspect]
     Active Substance: RITUXIMAB-PVVR
     Dosage: 694 MG WEEKLY, 4 DOSES
     Route: 042
     Dates: start: 20240105, end: 20240126
  5. RUXIENCE [Suspect]
     Active Substance: RITUXIMAB-PVVR
     Dosage: 694 MG WEEKLY, 4 DOSES
     Route: 042
     Dates: start: 20240105, end: 20240105
  6. RUXIENCE [Suspect]
     Active Substance: RITUXIMAB-PVVR
     Dosage: 694 MG WEEKLY, 4 DOSES
     Route: 042
     Dates: start: 20240112
  7. RUXIENCE [Suspect]
     Active Substance: RITUXIMAB-PVVR
     Dosage: 694 MG WEEKLY, 4 DOSES
     Route: 042
     Dates: start: 20240112, end: 20240112
  8. RUXIENCE [Suspect]
     Active Substance: RITUXIMAB-PVVR
     Dosage: 694 MG WEEKLY, 4 DOSES (697 MG, 1 WEEK (SUBSEQUENT TREATMENT)
     Route: 042
     Dates: start: 20240119
  9. RUXIENCE [Suspect]
     Active Substance: RITUXIMAB-PVVR
     Dosage: 694 MG WEEKLY, 4 DOSES (697 MG, 1 WEEK (SUBSEQUENT TREATMENT)
     Route: 042
     Dates: start: 20240119, end: 20240119
  10. RUXIENCE [Suspect]
     Active Substance: RITUXIMAB-PVVR
     Dosage: 694 MG WEEKLY, 4 DOSES
     Route: 042
     Dates: start: 20240126
  11. RUXIENCE [Suspect]
     Active Substance: RITUXIMAB-PVVR
     Dosage: 694 MG WEEKLY, 4 DOSES
     Route: 042
     Dates: start: 20240126, end: 20240126
  12. RUXIENCE [Suspect]
     Active Substance: RITUXIMAB-PVVR
     Dosage: 682 MG, WEEKLY, 4 DOSES (FIRST DOSE RETREATMENT)
     Route: 042
     Dates: start: 20240731
  13. RUXIENCE [Suspect]
     Active Substance: RITUXIMAB-PVVR
     Dosage: 682 MG, 4 DOSES (FIRST DOSE RETREATMENT)
     Route: 042
     Dates: start: 20240731
  14. RUXIENCE [Suspect]
     Active Substance: RITUXIMAB-PVVR
     Dosage: 682 MG, 4 DOSES (FIRST DOSE RETREATMENT)
     Route: 042
     Dates: start: 20240731, end: 20240731
  15. RUXIENCE [Suspect]
     Active Substance: RITUXIMAB-PVVR
     Dosage: 682 MG, WEEKLY 4 DOSES
     Route: 042
     Dates: start: 20240807
  16. RUXIENCE [Suspect]
     Active Substance: RITUXIMAB-PVVR
     Dosage: 682 MG, WEEKLY 4 DOSES
     Route: 042
     Dates: start: 20240807
  17. RUXIENCE [Suspect]
     Active Substance: RITUXIMAB-PVVR
     Dosage: 682 MG, WEEKLY, 4 DOSES
     Route: 042
     Dates: start: 20240819
  18. RUXIENCE [Suspect]
     Active Substance: RITUXIMAB-PVVR
     Dosage: 682 MG, WEEKLY, (WEEKLY FOR 4 WEEKS (W4))
     Route: 042
     Dates: start: 20240827
  19. RUXIENCE [Suspect]
     Active Substance: RITUXIMAB-PVVR
     Dosage: 682 MG, WEEKLY, (WEEKLY FOR 4 WEEKS (W4))
     Route: 042
     Dates: start: 20240827
  20. AMLODIPINE [Concomitant]
     Active Substance: AMLODIPINE BESYLATE
     Dosage: UNK
  21. CALCIUM [Concomitant]
     Active Substance: CALCIUM
     Dosage: UNK
  22. CELLCEPT [Concomitant]
     Active Substance: MYCOPHENOLATE MOFETIL
     Dosage: UNK
  23. INSULIN NOS [Concomitant]
     Active Substance: INSULIN NOS
     Dosage: UNK
  24. PREDNISONE [Concomitant]
     Active Substance: PREDNISONE
     Dosage: UNK
  25. RAMIPRIL [Concomitant]
     Active Substance: RAMIPRIL
     Dosage: UNK
  26. CHOLECALCIFEROL [Concomitant]
     Active Substance: CHOLECALCIFEROL
     Dosage: UNK

REACTIONS (12)
  - Tooth extraction [Unknown]
  - Tooth infection [Not Recovered/Not Resolved]
  - Tremor [Unknown]
  - Feeling cold [Unknown]
  - Heart rate increased [Unknown]
  - Asthenia [Unknown]
  - Procedural pain [Unknown]
  - Mouth swelling [Unknown]
  - Hypertension [Unknown]
  - Off label use [Unknown]
  - Off label use [Unknown]
  - Intentional product use issue [Unknown]

NARRATIVE: CASE EVENT DATE: 20240101
